FAERS Safety Report 9144355 (Version 1)
Quarter: 2013Q1

REPORT INFORMATION
  Report Type: Spontaneous
  Country: US (occurrence: US)
  Receive Date: 20130306
  Receipt Date: 20130306
  Transmission Date: 20140127
  Serious: Yes (Other)
  Sender: FDA-Public Use
  Company Number: US-PFIZER INC-2013076356

PATIENT
  Age: 71 Year
  Sex: Female
  Weight: 61.22 kg

DRUGS (3)
  1. LEVOXYL [Suspect]
     Indication: THYROID DISORDER
     Dosage: 88 UG, 1X/DAY
  2. LOSARTAN [Concomitant]
     Indication: BLOOD PRESSURE ABNORMAL
     Dosage: 100 MG, 1X/DAY
  3. ENJUVIA [Concomitant]
     Indication: HORMONE THERAPY
     Dosage: 0.3 MG, 1X/DAY

REACTIONS (3)
  - Gallbladder disorder [Unknown]
  - Post procedural complication [Unknown]
  - Rash [Not Recovered/Not Resolved]
